APPROVED DRUG PRODUCT: SODIUM POLYSTYRENE SULFONATE
Active Ingredient: SODIUM POLYSTYRENE SULFONATE
Strength: 15GM/60ML
Dosage Form/Route: SUSPENSION;ORAL, RECTAL
Application: A090590 | Product #001
Applicant: ANI PHARMACEUTICALS INC
Approved: May 13, 2011 | RLD: No | RS: No | Type: DISCN